FAERS Safety Report 6210951-3 (Version None)
Quarter: 2009Q2

REPORT INFORMATION
  Report Type: 
  Country: None (occurrence: None)
  Receive Date: 20090602
  Receipt Date: 20070405
  Transmission Date: 20091009
  Serious: Yes (Other)
  Sender: FDA-Public Use
  Company Number: US-ASTRAZENECA-2006UW07067

PATIENT
  Age: 54 Year
  Sex: Male
  Weight: 108.4 kg

DRUGS (26)
  1. SEROQUEL [Suspect]
     Indication: BIPOLAR DISORDER
     Dosage: 100-1200 MG
     Route: 048
     Dates: start: 20040222
  2. SEROQUEL [Suspect]
     Indication: SCHIZOPHRENIA
     Dosage: 100-1200 MG
     Route: 048
     Dates: start: 20040222
  3. SEROQUEL [Suspect]
     Indication: POST-TRAUMATIC STRESS DISORDER
     Dosage: 100-1200 MG
     Route: 048
     Dates: start: 20040222
  4. SEROQUEL [Suspect]
     Indication: AGGRESSION
     Dosage: 100-1200 MG
     Route: 048
     Dates: start: 20040222
  5. SEROQUEL [Suspect]
     Indication: SLEEP DISORDER
     Dosage: 100-1200 MG
     Route: 048
     Dates: start: 20040222
  6. SEROQUEL [Suspect]
     Indication: ANGER
     Dosage: 100-1200 MG
     Route: 048
     Dates: start: 20040222
  7. SEROQUEL [Suspect]
     Route: 048
     Dates: start: 20040901, end: 20050101
  8. SEROQUEL [Suspect]
     Route: 048
     Dates: start: 20040901, end: 20050101
  9. SEROQUEL [Suspect]
     Route: 048
     Dates: start: 20040901, end: 20050101
  10. SEROQUEL [Suspect]
     Route: 048
     Dates: start: 20040901, end: 20050101
  11. SEROQUEL [Suspect]
     Route: 048
     Dates: start: 20040901, end: 20050101
  12. SEROQUEL [Suspect]
     Route: 048
     Dates: start: 20040901, end: 20050101
  13. SYNTHROID [Concomitant]
     Dates: start: 20010320
  14. TRICOR [Concomitant]
     Route: 048
     Dates: start: 20021120
  15. ALLEGRA D 24 HOUR [Concomitant]
     Dosage: EVERY DAY
     Route: 048
     Dates: start: 19970401
  16. LEXAPRO [Concomitant]
     Dosage: 15 MG ONE EVERYDAY BEFORE NOON, 10 MG TWO EVERY DAY, 20 MG DAILY
     Dates: start: 20030902
  17. GABITRIL [Concomitant]
     Dosage: 2 MG, 4 MG AT NIGHT
     Route: 048
     Dates: start: 20041214
  18. NEXIUM [Concomitant]
     Dosage: 40 MG ONE EVERYDAY, 40 MG ONE AT NIGHT
     Dates: start: 20010320
  19. HALOPERIDOL [Concomitant]
     Dosage: 0.5 MG, 5 MG
     Dates: start: 20040923
  20. CARDIZEM LA [Concomitant]
     Dosage: 180 MG,240 MG ONE EVERY DAY BEFORE NOON
     Dates: start: 20041108
  21. EFFEXOR [Concomitant]
     Dosage: 37.5 MG, 150 MG, 250 MG
     Dates: start: 20060622
  22. GLUCOPHAGE [Concomitant]
     Dates: start: 20050223
  23. LIPITOR [Concomitant]
     Dates: start: 20010802
  24. CRESTOR [Concomitant]
     Dosage: 5 MG, 10 MG
     Dates: start: 20050329
  25. ANTIVERT [Concomitant]
     Indication: DIZZINESS
     Dosage: 25 MG THREE TIMES A DAY AS REQUIRED
     Route: 048
     Dates: start: 19980904
  26. ATIVAN [Concomitant]
     Dosage: AS REQUIRED
     Route: 048
     Dates: start: 20040921

REACTIONS (3)
  - DIABETES MELLITUS [None]
  - DIABETIC RETINOPATHY [None]
  - TYPE 2 DIABETES MELLITUS [None]
